FAERS Safety Report 7480764-3 (Version None)
Quarter: 2011Q2

REPORT INFORMATION
  Report Type: 
  Country: None (occurrence: None)
  Receive Date: 20110516
  Receipt Date: 20110112
  Transmission Date: 20111010
  Serious: Yes (Hospitalization)
  Sender: FDA-Public Use
  Company Number: US-BAYER-201031977NA

PATIENT
  Age: 39 Year
  Sex: Female
  Weight: 83.9 kg

DRUGS (12)
  1. IBUPROFEN [Concomitant]
  2. ZITHROMAX [Concomitant]
  3. ALBUTEROL [Concomitant]
     Route: 045
  4. XANAX [Concomitant]
     Dosage: 0.25 MG, PRN
     Route: 048
  5. YAZ [Suspect]
     Indication: PRODUCT USED FOR UNKNOWN INDICATION
     Dosage: UNK
     Route: 048
     Dates: start: 20090629, end: 20090804
  6. CELEXA [Concomitant]
     Indication: ANXIETY
     Dosage: 20 MG, QD
     Route: 048
     Dates: start: 20080101
  7. TRAZODONE HCL [Concomitant]
     Indication: ANXIETY
     Dosage: 50 MG, HS
     Route: 048
     Dates: start: 20080101
  8. ALPRAZOLAM [Concomitant]
     Dosage: UNK UNK, PRN
  9. AVELOX [Concomitant]
  10. PROMETHAZINE [Concomitant]
  11. NAPROXEN (ALEVE) [Concomitant]
     Indication: MENSTRUAL CYCLE MANAGEMENT
     Dosage: UNK UNK, PRN
     Route: 048
     Dates: start: 20000101, end: 20090101
  12. TESSALON [Concomitant]

REACTIONS (2)
  - GENITAL HAEMORRHAGE [None]
  - PULMONARY EMBOLISM [None]
